FAERS Safety Report 8104556-7 (Version None)
Quarter: 2012Q1

REPORT INFORMATION
  Report Type: 
  Country: None (occurrence: None)
  Receive Date: 20120130
  Receipt Date: 20120123
  Transmission Date: 20120608
  Serious: Yes (Hospitalization, Other)
  Sender: FDA-Public Use
  Company Number: PHHY2012FR006536

PATIENT
  Age: 32 Year
  Sex: Female

DRUGS (2)
  1. TRIPHASIL-21 [Concomitant]
     Dosage: UNK UKN, UNK
  2. TASIGNA [Suspect]
     Dosage: 200 MG
     Dates: start: 20101201

REACTIONS (4)
  - LUNG DISORDER [None]
  - PERICARDITIS [None]
  - HYPERTHYROIDISM [None]
  - ERYTHEMA NODOSUM [None]
